FAERS Safety Report 21176420 (Version 1)
Quarter: 2022Q3

REPORT INFORMATION
  Report Type: Report from Study
  Country: SE (occurrence: SE)
  Receive Date: 20220805
  Receipt Date: 20220805
  Transmission Date: 20221027
  Serious: Yes (Other)
  Sender: FDA-Public Use
  Company Number: None

PATIENT
  Age: 62 Year
  Sex: Male

DRUGS (3)
  1. AZACITIDINE [Suspect]
     Active Substance: AZACITIDINE
     Indication: Myelodysplastic syndrome
     Dosage: MONOTHERAPY DOSAGE NOT STATED
  2. VENETOCLAX [Suspect]
     Active Substance: VENETOCLAX
     Indication: Myelodysplastic syndrome
     Dosage: 100 MILLIGRAM, CYCLE FOR 5 DAYS IN A CYCLE; RECEIVED 1CYCLE
  3. AZACITIDINE [Suspect]
     Active Substance: AZACITIDINE
     Indication: Myelodysplastic syndrome
     Dosage: 100 MILLIGRAM/SQ. METER, CYCLE FOR 5 DAYS IN A CYCLE; RECEIVED 1 CYCLE)

REACTIONS (3)
  - Myelodysplastic syndrome [Unknown]
  - Epstein-Barr virus infection reactivation [Unknown]
  - Cytomegalovirus infection reactivation [Unknown]
